FAERS Safety Report 9707438 (Version 7)
Quarter: 2014Q3

REPORT INFORMATION
  Report Type: Report from Study
  Country: US (occurrence: US)
  Receive Date: 20131125
  Receipt Date: 20140820
  Transmission Date: 20150326
  Serious: Yes (Other)
  Sender: FDA-Public Use
  Company Number: PHHY2013US134072

PATIENT
  Age: 64 Year
  Sex: Female
  Weight: 74.14 kg

DRUGS (25)
  1. BACLOFEN. [Concomitant]
     Active Substance: BACLOFEN
     Dosage: 10 MG, QD
  2. RAMPRIL [Concomitant]
     Dosage: 2.5 MG, QD
     Route: 048
  3. GILENYA [Suspect]
     Active Substance: FINGOLIMOD HYDROCHLORIDE
     Indication: MULTIPLE SCLEROSIS
     Dosage: 0.5 MG, QD
     Route: 048
     Dates: start: 201304, end: 20131029
  4. ENABLEX [Concomitant]
     Active Substance: DARIFENACIN\DARIFENACIN HYDROBROMIDE
  5. IMDUR [Concomitant]
     Active Substance: ISOSORBIDE MONONITRATE
  6. AVONEX [Concomitant]
     Active Substance: INTERFERON BETA-1A
     Dosage: 30 UG, QW
     Route: 030
  7. MICRO K [Concomitant]
     Dosage: 8 MEQ, PRN
     Route: 048
  8. TENORMIN [Concomitant]
     Active Substance: ATENOLOL
  9. ANTIVERT [Concomitant]
     Active Substance: MECLIZINE HYDROCHLORIDE
     Dosage: 25 MG, TID
     Route: 048
  10. ASPIRIN. [Concomitant]
     Active Substance: ASPIRIN
     Dosage: 81 MG, QD
     Route: 048
  11. PRILOSEC [Concomitant]
     Active Substance: OMEPRAZOLE MAGNESIUM
  12. DITROPAN [Concomitant]
     Active Substance: OXYBUTYNIN CHLORIDE
     Dosage: 5 MG, TID
     Route: 048
  13. NEURONTIN [Concomitant]
     Active Substance: GABAPENTIN
     Dosage: 400 MG, BID
     Route: 048
  14. ZOCOR [Concomitant]
     Active Substance: SIMVASTATIN
     Dosage: 40 MG, QD
     Route: 048
  15. ZOSTAVAX [Concomitant]
     Active Substance: VARICELLA-ZOSTER VIRUS STRAIN OKA/MERCK LIVE ANTIGEN
     Dosage: UNK
     Route: 058
     Dates: start: 20090708
  16. AMPYRA [Concomitant]
     Active Substance: DALFAMPRIDINE
     Dosage: 10 MG, BID
  17. BACLOFEN. [Concomitant]
     Active Substance: BACLOFEN
     Dosage: 10 MG, TID
  18. VITAMIN D3 [Concomitant]
     Active Substance: CHOLECALCIFEROL
     Dosage: 2000 IU, QD
     Route: 048
  19. NITROGLYCERINE [Concomitant]
     Active Substance: NITROGLYCERIN
  20. LYRICA [Concomitant]
     Active Substance: PREGABALIN
     Dosage: 150 MG, QD
  21. ATIVAN [Concomitant]
     Active Substance: LORAZEPAM
     Dosage: 0.5 MG, BID
     Route: 048
  22. HYDROCHLOROTHIAZIDE. [Concomitant]
     Active Substance: HYDROCHLOROTHIAZIDE
     Dosage: 12.5 MG, QD
     Route: 048
  23. MOTRIN [Concomitant]
     Active Substance: IBUPROFEN
     Dosage: 800 MG, PRN
  24. OMEGA 3 [Concomitant]
     Active Substance: OMEGA-3 FATTY ACIDS
  25. PNEUMOVAX 23 [Concomitant]
     Active Substance: PNEUMOCOCCAL VACCINE, POLYVALENT 23
     Route: 058
     Dates: start: 20080124

REACTIONS (10)
  - Haematocrit decreased [Unknown]
  - Haemoglobin decreased [Unknown]
  - Lymphocyte count decreased [Unknown]
  - Leukopenia [Unknown]
  - Neutrophil count increased [Unknown]
  - Eosinophil count decreased [Unknown]
  - Monocyte count increased [Unknown]
  - Mean cell haemoglobin increased [Unknown]
  - Feeling abnormal [Unknown]
  - Erythema [Unknown]

NARRATIVE: CASE EVENT DATE: 20131107
